FAERS Safety Report 8898336 (Version 1)
Quarter: 2012Q4

REPORT INFORMATION
  Report Type: 
  Country: US (occurrence: US)
  Receive Date: 20121108
  Receipt Date: 20121108
  Transmission Date: 20130627
  Serious: No
  Sender: FDA-Public Use
  Company Number: US-AMGEN-USASP2012024521

PATIENT
  Age: 51 Year
  Sex: Female

DRUGS (4)
  1. ENBREL [Suspect]
     Indication: RHEUMATOID ARTHRITIS
     Dosage: 50 mg, q2wk
     Dates: start: 2009, end: 2009
  2. ARAVA [Concomitant]
     Dosage: UNK
     Dates: start: 201104
  3. HUMIRA [Concomitant]
  4. CIMZIA [Concomitant]

REACTIONS (10)
  - Rheumatoid arthritis [Not Recovered/Not Resolved]
  - Migraine [Recovered/Resolved]
  - Headache [Recovered/Resolved]
  - Eczema [Recovered/Resolved]
  - Stomatitis [Recovered/Resolved]
  - Skin papilloma [Recovered/Resolved]
  - Psoriasis [Recovered/Resolved]
  - Injection site pain [Recovered/Resolved]
  - Injection site induration [Recovered/Resolved]
  - Injection site swelling [Recovered/Resolved]
